FAERS Safety Report 7608129-1 (Version None)
Quarter: 2011Q3

REPORT INFORMATION
  Report Type: 
  Country: None (occurrence: None)
  Receive Date: 20110714
  Receipt Date: 20110708
  Transmission Date: 20111222
  Serious: Yes (Other)
  Sender: FDA-Public Use
  Company Number: US-ELI_LILLY_AND_COMPANY-US201107002647

PATIENT
  Age: 44 Year
  Sex: Female

DRUGS (2)
  1. EFFIENT [Suspect]
     Indication: STENT PLACEMENT
     Dosage: 60 MG, LOADING DOSE
     Route: 065
     Dates: start: 20110401
  2. EFFIENT [Suspect]
     Dosage: 10 MG, MAINTENANCE DOSE
     Route: 065

REACTIONS (1)
  - IN-STENT ARTERIAL RESTENOSIS [None]
